FAERS Safety Report 18328170 (Version 2)
Quarter: 2020Q4

REPORT INFORMATION
  Report Type: Spontaneous
  Country: US (occurrence: US)
  Receive Date: 20200929
  Receipt Date: 20201001
  Transmission Date: 20210113
  Serious: Yes (Other)
  Sender: FDA-Public Use
  Company Number: US-JNJFOC-20200811177

PATIENT
  Age: 55 Year
  Sex: Male
  Weight: 72.64 kg

DRUGS (2)
  1. LISTERINE TOTAL CARE STAIN REMOVER ANTI CAVITY FRESHMINT [Suspect]
     Active Substance: SODIUM FLUORIDE
     Indication: DENTAL DISORDER PROPHYLAXIS
     Dosage: DOSE:1 TEASPOON, TID, PRODUCT RESTARTED TWICE PRIOR TO JUL-2020 AND SAME SORES OCCURRED
     Route: 048
     Dates: start: 202002, end: 202007
  2. ATORVASTATIN [Concomitant]
     Active Substance: ATORVASTATIN
     Indication: BLOOD CHOLESTEROL ABNORMAL
     Dosage: CONTINUE
     Route: 065

REACTIONS (5)
  - Hyperaesthesia teeth [Recovered/Resolved]
  - Ulcer haemorrhage [Recovered/Resolved]
  - Gingival injury [Recovered/Resolved]
  - Application site haemorrhage [Recovered/Resolved]
  - Inappropriate schedule of product administration [Recovered/Resolved]

NARRATIVE: CASE EVENT DATE: 202002
